FAERS Safety Report 17660012 (Version 1)
Quarter: 2020Q2

REPORT INFORMATION
  Report Type: Spontaneous
  Country: GB (occurrence: GB)
  Receive Date: 20200413
  Receipt Date: 20200413
  Transmission Date: 20200713
  Serious: Yes (Hospitalization)
  Sender: FDA-Public Use
  Company Number: GB-TEVA-2020-GB-1222897

PATIENT
  Age: 63 Year
  Sex: Male

DRUGS (9)
  1. BUTEC [Concomitant]
     Active Substance: BUPRENORPHINE
     Dosage: 20MCG/HOUR
     Route: 062
  2. PREGABALIN. [Concomitant]
     Active Substance: PREGABALIN
     Dosage: 150MG EACH MORNING AND LUNCHTIME AND 300MG EACH NIGHT, UNIT DOSE: 600 MG
     Route: 048
  3. ALLOPURINOL. [Concomitant]
     Active Substance: ALLOPURINOL
     Dosage: 300 MG EACH NIGHT.
     Route: 048
  4. METFORMIN [Concomitant]
     Active Substance: METFORMIN HYDROCHLORIDE
     Dosage: 2 GRAM
     Route: 048
  5. NORTRIPTYLINE [Concomitant]
     Active Substance: NORTRIPTYLINE
     Dosage: EACH NIGHT, 50MG AND 25MG TABLETS.
     Route: 048
  6. LAXIDO [Concomitant]
     Active Substance: POLYETHYLENE GLYCOL 3350\POTASSIUM CHLORIDE\SODIUM BICARBONATE\SODIUM CHLORIDE
     Dosage: 1 DF
     Route: 048
  7. ATORVASTATIN [Concomitant]
     Active Substance: ATORVASTATIN
     Dosage: 10 MG, EACH NIGHT.
     Route: 048
  8. RAMIPRIL. [Suspect]
     Active Substance: RAMIPRIL
     Dosage: 10 MG EACH MORNING.
     Route: 048
     Dates: end: 20200326
  9. FENBID [Concomitant]
     Active Substance: IBUPROFEN
     Dosage: TDS PRN
     Route: 061

REACTIONS (2)
  - Dizziness [Unknown]
  - Orthostatic hypotension [Unknown]

NARRATIVE: CASE EVENT DATE: 20200326
